FAERS Safety Report 8268780-5 (Version None)
Quarter: 2012Q2

REPORT INFORMATION
  Report Type: 
  Country: None (occurrence: None)
  Receive Date: 20120409
  Receipt Date: 20120409
  Transmission Date: 20120825
  Serious: Yes (Other)
  Sender: FDA-Public Use
  Company Number: None

PATIENT
  Sex: Male

DRUGS (7)
  1. DOXYCYCLINE [Concomitant]
  2. HYDROXYZINE [Concomitant]
  3. AMOX TR/POT CLAVULANATE [Concomitant]
  4. METOCLOPRAMIDE [Suspect]
     Indication: NAUSEA
     Dates: start: 20111223, end: 20111223
  5. METOCLOPRAMIDE [Suspect]
     Indication: VOMITING
     Dates: start: 20111223, end: 20111223
  6. CLOTRIMAZOL/BETAM-LOTRISONE [Concomitant]
     Route: 061
  7. ACETAMIN/COD-TYLENOL #3 EQ [Concomitant]
     Route: 048

REACTIONS (3)
  - LIP SWELLING [None]
  - OEDEMA MOUTH [None]
  - OEDEMA PERIPHERAL [None]
